FAERS Safety Report 5075872-0 (Version None)
Quarter: 2006Q3

REPORT INFORMATION
  Report Type: 
  Country: None (occurrence: None)
  Receive Date: 20060803
  Receipt Date: 20060803
  Transmission Date: 20061208
  Serious: Yes (Hospitalization)
  Sender: FDA-Public Use
  Company Number: None

PATIENT
  Sex: Male
  Weight: 72 kg

DRUGS (3)
  1. ZOSYN [Suspect]
     Indication: BRONCHIECTASIS
     Dosage: 3.375 G Q6 HR IV
     Route: 042
     Dates: start: 20060421, end: 20060503
  2. ZOSYN [Suspect]
  3. ZOSYN [Suspect]

REACTIONS (2)
  - NEUTROPENIA [None]
  - PYREXIA [None]
